FAERS Safety Report 5969861-9 (Version None)
Quarter: 2008Q4

REPORT INFORMATION
  Report Type: 
  Country: None (occurrence: None)
  Receive Date: 20081126
  Receipt Date: 20080930
  Transmission Date: 20090506
  Serious: No
  Sender: FDA-Public Use
  Company Number: US-ABBOTT-08P-163-0479011-00

PATIENT
  Sex: Male
  Weight: 102.15 kg

DRUGS (9)
  1. SIMCOR [Suspect]
     Indication: BLOOD CHOLESTEROL INCREASED
     Dosage: 500/20 MG AT BEDTIME
     Route: 048
     Dates: start: 20080828
  2. ESOMEPRAZOLE MAGNESIUM [Concomitant]
     Indication: GASTROOESOPHAGEAL REFLUX DISEASE
  3. AMLODIPINE [Concomitant]
     Indication: BLOOD PRESSURE
  4. CELECOXIB [Concomitant]
     Indication: ARTHRITIS
  5. LEVOTHYROXINE SODIUM [Concomitant]
     Indication: HYPOTHYROIDISM
  6. LEVOTHYROXINE SODIUM [Concomitant]
     Dosage: DOSE INCREASED
  7. LOSARTAN POTASSIUM [Concomitant]
     Indication: BLOOD PRESSURE
  8. BUMETANIDE [Concomitant]
     Indication: DRUG USE FOR UNKNOWN INDICATION
  9. TETRYZOLINE HYDROCHLORIDE [Concomitant]
     Indication: GLAUCOMA

REACTIONS (2)
  - FLUSHING [None]
  - HYPOTHYROIDISM [None]
